FAERS Safety Report 10282452 (Version 2)
Quarter: 2014Q3

REPORT INFORMATION
  Report Type: Spontaneous
  Country: JP (occurrence: JP)
  Receive Date: 20140707
  Receipt Date: 20140725
  Transmission Date: 20150326
  Serious: Yes (Other)
  Sender: FDA-Public Use
  Company Number: JP-PFIZER INC-2014186299

PATIENT
  Age: 73 Year
  Sex: Male

DRUGS (10)
  1. RABEPRAZOLE [Concomitant]
     Active Substance: RABEPRAZOLE
     Dosage: UNK
  2. AMLODIPINE [Concomitant]
     Active Substance: AMLODIPINE BESYLATE
     Dosage: UNK
  3. TRAZENTA [Concomitant]
     Active Substance: LINAGLIPTIN
     Dosage: UNK
  4. LOPRESSOR [Concomitant]
     Active Substance: METOPROLOL TARTRATE
     Dosage: UNK
  5. SEIBULE [Concomitant]
     Active Substance: MIGLITOL
     Dosage: UNK
  6. ALESION [Concomitant]
     Active Substance: EPINASTINE HYDROCHLORIDE
     Dosage: UNK
  7. IRBETAN [Concomitant]
     Active Substance: IRBESARTAN
     Dosage: UNK
  8. CHAMPIX [Suspect]
     Active Substance: VARENICLINE TARTRATE
     Dosage: UNK
     Route: 048
     Dates: end: 201407
  9. PHELLOBERIN [Concomitant]
     Dosage: UNK
  10. METGLUCO [Concomitant]
     Active Substance: METFORMIN HYDROCHLORIDE
     Dosage: UNK

REACTIONS (5)
  - Hepatic function abnormal [Recovering/Resolving]
  - Fall [Unknown]
  - Anaemia [Unknown]
  - Dizziness postural [Unknown]
  - Decreased appetite [Unknown]

NARRATIVE: CASE EVENT DATE: 201407
